FAERS Safety Report 9717004 (Version 2)
Quarter: 2015Q3

REPORT INFORMATION
  Report Type: Spontaneous
  Country: US (occurrence: US)
  Receive Date: 20131127
  Receipt Date: 20150803
  Transmission Date: 20151125
  Serious: No
  Sender: FDA-Public Use
  Company Number: US-GILEAD-2009-0020306

PATIENT
  Age: 67 Year
  Sex: Female
  Weight: 72.57 kg

DRUGS (19)
  1. LIPITOR [Concomitant]
     Active Substance: ATORVASTATIN CALCIUM
  2. AMARYL [Concomitant]
     Active Substance: GLIMEPIRIDE
  3. TYLENOL EX-STRENGTH [Concomitant]
  4. EVOXAC [Concomitant]
     Active Substance: CEVIMELINE HYDROCHLORIDE
  5. ACIPHEX [Concomitant]
     Active Substance: RABEPRAZOLE SODIUM
  6. TRAVATON [Concomitant]
     Route: 047
  7. FUROSEMIDE. [Concomitant]
     Active Substance: FUROSEMIDE
  8. TOPROL XL [Concomitant]
     Active Substance: METOPROLOL SUCCINATE
  9. MUCOSIL CMPD [Concomitant]
  10. ASPIRIN. [Concomitant]
     Active Substance: ASPIRIN
  11. GILKO BILOBA [Concomitant]
  12. LETAIRIS [Suspect]
     Active Substance: AMBRISENTAN
     Indication: PULMONARY ARTERIAL HYPERTENSION
     Route: 048
     Dates: start: 20081002
  13. PROCARDIA [Concomitant]
     Active Substance: NIFEDIPINE
  14. CUPRIMINE [Concomitant]
     Active Substance: PENICILLAMINE
  15. LOCOID LIPOCREAM [Concomitant]
     Active Substance: HYDROCORTISONE BUTYRATE
  16. ACTONEL [Concomitant]
     Active Substance: RISEDRONATE SODIUM
  17. DARVOCET-N 100 [Concomitant]
     Active Substance: ACETAMINOPHEN\PROPOXYPHENE NAPSYLATE
  18. OCUVITE [Concomitant]
     Active Substance: VITAMINS
  19. ERGOCALCIFEROL/NICOTINAMIDE/RETINOL/ASCORBIC ACID/FOLIC ACID/PANTHENOL/RIBOFLAVIN/THIAMINE HYDROCHLO [Concomitant]

REACTIONS (2)
  - Dizziness [Unknown]
  - Muscle spasms [Unknown]
